FAERS Safety Report 5598708-8 (Version None)
Quarter: 2008Q1

REPORT INFORMATION
  Report Type: 
  Country: None (occurrence: None)
  Receive Date: 20080122
  Receipt Date: 20080110
  Transmission Date: 20080703
  Serious: Yes (Other)
  Sender: FDA-Public Use
  Company Number: US-ELI_LILLY_AND_COMPANY-US200711002662

PATIENT
  Age: 55 Year
  Sex: Female

DRUGS (1)
  1. EVISTA [Suspect]

REACTIONS (4)
  - EXERCISE TOLERANCE DECREASED [None]
  - FALL [None]
  - FRACTURE [None]
  - MULTIPLE SCLEROSIS [None]
